FAERS Safety Report 7771629-8 (Version None)
Quarter: 2011Q3

REPORT INFORMATION
  Report Type: 
  Country: None (occurrence: None)
  Receive Date: 20110922
  Receipt Date: 20110719
  Transmission Date: 20111222
  Serious: Yes (Other)
  Sender: FDA-Public Use
  Company Number: US-ASTRAZENECA-2011SE43254

PATIENT
  Age: 15 Year
  Sex: Male

DRUGS (2)
  1. SEROQUEL XR [Suspect]
     Indication: SCHIZOPHRENIA
     Route: 048
  2. COGENTIN [Concomitant]

REACTIONS (5)
  - PLATELET COUNT DECREASED [None]
  - MUSCLE TIGHTNESS [None]
  - WHITE BLOOD CELL COUNT DECREASED [None]
  - COGWHEEL RIGIDITY [None]
  - DYSTONIA [None]
